FAERS Safety Report 7796491-9 (Version None)
Quarter: 2011Q4

REPORT INFORMATION
  Report Type: 
  Country: None (occurrence: None)
  Receive Date: 20111005
  Receipt Date: 20110924
  Transmission Date: 20120403
  Serious: Yes (Hospitalization, Other)
  Sender: FDA-Public Use
  Company Number: US-PAR PHARMACEUTICAL, INC-2011SCPR003255

PATIENT

DRUGS (10)
  1. GABAPENTIN [Concomitant]
     Indication: HEADACHE
     Dosage: 4800 MG, QD
     Route: 048
  2. DULOXETIME HYDROCHLORIDE [Concomitant]
     Indication: PRODUCT USED FOR UNKNOWN INDICATION
     Dosage: UNK UNK, HS
     Route: 065
  3. NICOTINE [Suspect]
     Indication: SMOKING CESSATION THERAPY
     Dosage: UNK, UNKNOWN
     Route: 065
  4. LORAZEPAM [Concomitant]
     Indication: PRODUCT USED FOR UNKNOWN INDICATION
     Dosage: UNK, UNKNOWN
     Route: 048
  5. NATALIZUMAB [Concomitant]
     Indication: PRODUCT USED FOR UNKNOWN INDICATION
     Dosage: UNK, UNKNOWN
     Route: 065
  6. HYDROCODONE/ACETAMINOPHEN          /01554201/ [Concomitant]
     Indication: HEADACHE
     Dosage: 10/650 MG
     Route: 048
  7. VERAPAMIL HCL [Interacting]
     Dosage: 180 MG, DAILY
     Route: 048
  8. VERAPAMIL HCL [Interacting]
     Indication: HYPERTENSION
     Dosage: 120 MG, HS, DAILY
     Route: 048
  9. AMANTADINE HCL [Concomitant]
     Indication: PRODUCT USED FOR UNKNOWN INDICATION
     Dosage: UNK, UNKNOWN
     Route: 065
  10. DIHYDROERGOTAMINE [Interacting]
     Indication: MIGRAINE
     Dosage: 1 MG, SINGLE
     Route: 040

REACTIONS (4)
  - PRINZMETAL ANGINA [None]
  - DRUG INTERACTION [None]
  - MIGRAINE [None]
  - MITRAL VALVE INCOMPETENCE [None]
